FAERS Safety Report 8431969-6 (Version None)
Quarter: 2012Q2

REPORT INFORMATION
  Report Type: 
  Country: None (occurrence: None)
  Receive Date: 20120613
  Receipt Date: 20120314
  Transmission Date: 20120825
  Serious: No
  Sender: FDA-Public Use
  Company Number: US-ASTRAZENECA-2009SE11780

PATIENT
  Age: 61 Year
  Sex: Female
  Weight: 65.8 kg

DRUGS (8)
  1. ROLAIDS [Concomitant]
  2. RHINOCORT [Suspect]
     Indication: SINUS DISORDER
     Dosage: 32 MCG 120 METER SPRAY/UNIT
     Route: 045
  3. RHINOCORT [Suspect]
     Dosage: 2 PUFFS, PRN
     Route: 045
  4. ANTIBIOTICS [Concomitant]
  5. RHINOCORT [Suspect]
     Indication: SEASONAL ALLERGY
     Dosage: 32 MCG 120 METER SPRAY/UNIT
     Route: 045
  6. ANACIN [Concomitant]
  7. PRILOSEC OTC [Suspect]
     Indication: GASTROOESOPHAGEAL REFLUX DISEASE
     Route: 048
  8. RHINOCORT [Suspect]
     Dosage: 2 PUFFS, PRN
     Route: 045

REACTIONS (9)
  - HEADACHE [None]
  - SNEEZING [None]
  - EYE IRRITATION [None]
  - NASAL CONGESTION [None]
  - VISUAL IMPAIRMENT [None]
  - SINUSITIS [None]
  - DRUG DOSE OMISSION [None]
  - OFF LABEL USE [None]
  - VISION BLURRED [None]
